FAERS Safety Report 7968754-5 (Version None)
Quarter: 2011Q4

REPORT INFORMATION
  Report Type: 
  Country: None (occurrence: None)
  Receive Date: 20111209
  Receipt Date: 20111202
  Transmission Date: 20120403
  Serious: No
  Sender: FDA-Public Use
  Company Number: US-US-EMD SERONO, INC.-7079350

PATIENT
  Sex: Female

DRUGS (3)
  1. VALIUM [Concomitant]
     Indication: PREMEDICATION
  2. PHENERGAN [Concomitant]
     Indication: PREMEDICATION
  3. REBIF [Suspect]
     Indication: MULTIPLE SCLEROSIS
     Route: 058
     Dates: start: 20090828

REACTIONS (12)
  - INJECTION SITE DISCOLOURATION [None]
  - MENTAL DISORDER [None]
  - INJECTION SITE HAEMATOMA [None]
  - VOMITING [None]
  - OROPHARYNGEAL PAIN [None]
  - DECREASED APPETITE [None]
  - NAUSEA [None]
  - INJECTION SITE RASH [None]
  - INJECTION SITE ERYTHEMA [None]
  - INJECTION SITE PAIN [None]
  - DIZZINESS [None]
  - MALAISE [None]
